FAERS Safety Report 15855129 (Version 1)
Quarter: 2019Q1

REPORT INFORMATION
  Report Type: Spontaneous
  Country: US (occurrence: US)
  Receive Date: 20190122
  Receipt Date: 20190122
  Transmission Date: 20190417
  Serious: Yes (Other)
  Sender: FDA-Public Use
  Company Number: US-ALLERGAN-1835020US

PATIENT
  Sex: Female

DRUGS (1)
  1. MONUROL [Suspect]
     Active Substance: FOSFOMYCIN TROMETHAMINE
     Indication: URINARY TRACT INFECTION
     Dosage: 3 G, SINGLE (ONE PACKET AS A ONE TIME DOSE)
     Route: 048
     Dates: start: 20180707, end: 20180707

REACTIONS (3)
  - Off label use [Unknown]
  - Asthma [Recovered/Resolved]
  - Drug ineffective for unapproved indication [Unknown]
